FAERS Safety Report 9836820 (Version 2)
Quarter: 2014Q1

REPORT INFORMATION
  Report Type: Spontaneous
  Country: US (occurrence: US)
  Receive Date: 20140123
  Receipt Date: 20140304
  Transmission Date: 20141002
  Serious: No
  Sender: FDA-Public Use
  Company Number: US-PFIZER INC-2014014618

PATIENT
  Sex: Female

DRUGS (13)
  1. CLINDAMYCIN HCL [Suspect]
     Dosage: UNK
  2. ERYTHROMYCIN [Suspect]
     Dosage: UNK
  3. NEURONTIN [Suspect]
     Dosage: UNK
  4. IBUPROFEN [Suspect]
     Dosage: UNK
  5. LIDOCAINE HCL [Suspect]
     Dosage: UNK
  6. MORPHINE SULFATE [Suspect]
     Dosage: UNK
  7. ASPIRIN [Suspect]
     Dosage: UNK
  8. CEPHALEXIN [Suspect]
     Dosage: UNK
  9. CODEINE [Suspect]
     Dosage: UNK
  10. DYPHYLLINE [Suspect]
     Dosage: UNK
  11. IODINE [Suspect]
     Dosage: UNK
  12. TORADOL [Suspect]
     Dosage: UNK
  13. MELOXICAM [Suspect]
     Dosage: UNK

REACTIONS (1)
  - Drug hypersensitivity [Unknown]
